FAERS Safety Report 5829586-7 (Version None)
Quarter: 2008Q3

REPORT INFORMATION
  Report Type: 
  Country: None (occurrence: None)
  Receive Date: 20080731
  Receipt Date: 20080721
  Transmission Date: 20090109
  Serious: Yes (Hospitalization)
  Sender: FDA-Public Use
  Company Number: US-PFIZER INC-2008060677

PATIENT
  Sex: Female

DRUGS (2)
  1. SOLU-MEDROL [Suspect]
  2. COPAXONE [Suspect]
     Indication: MULTIPLE SCLEROSIS
     Route: 058

REACTIONS (5)
  - CHEST DISCOMFORT [None]
  - ERYTHEMA [None]
  - FLUSHING [None]
  - PALPITATIONS [None]
  - SWELLING [None]
